FAERS Safety Report 18358935 (Version 1)
Quarter: 2020Q4

REPORT INFORMATION
  Report Type: Report from Study
  Country: CO (occurrence: CO)
  Receive Date: 20201008
  Receipt Date: 20201008
  Transmission Date: 20210114
  Serious: Yes (Death)
  Sender: FDA-Public Use
  Company Number: NVSC2020CO243380

PATIENT
  Age: 36 Year
  Sex: Male

DRUGS (1)
  1. VOTRIENT [Suspect]
     Active Substance: PAZOPANIB HYDROCHLORIDE
     Indication: SOFT TISSUE SARCOMA
     Dosage: 800 MG, QD
     Route: 048

REACTIONS (7)
  - Illness [Unknown]
  - Mobility decreased [Fatal]
  - Soft tissue sarcoma [Fatal]
  - Back pain [Unknown]
  - Eating disorder [Fatal]
  - Feeling abnormal [Fatal]
  - Cough [Unknown]

NARRATIVE: CASE EVENT DATE: 20200902
